FAERS Safety Report 5335318-1 (Version None)
Quarter: 2007Q2

REPORT INFORMATION
  Report Type: 
  Country: None (occurrence: None)
  Receive Date: 20070327
  Receipt Date: 20060801
  Transmission Date: 20071010
  Serious: Yes (Other)
  Sender: FDA-Public Use
  Company Number: HQWYE706402AUG06

PATIENT
  Sex: Female

DRUGS (6)
  1. PROTONIX [Suspect]
     Indication: COUGH
     Dosage: 40 MG 1X PER 1 DAY ORAL
     Route: 048
     Dates: start: 20030101, end: 20050601
  2. PROTONIX [Suspect]
     Indication: GASTROOESOPHAGEAL REFLUX DISEASE
     Dosage: 40 MG 1X PER 1 DAY ORAL
     Route: 048
     Dates: start: 20030101, end: 20050601
  3. PROTONIX [Suspect]
     Dosage: 40 MG 1X PER 1 DAY ORAL
     Route: 048
     Dates: start: 20050901, end: 20060701
  4. PROTONIX [Suspect]
     Dosage: 40 MG AS NEEDED ORAL
     Route: 048
     Dates: start: 20050601, end: 20050901
  5. LIPITOR [Concomitant]
  6. TOPROL-XL [Concomitant]

REACTIONS (1)
  - OPTIC ISCHAEMIC NEUROPATHY [None]
